FAERS Safety Report 23677165 (Version 4)
Quarter: 2024Q2

REPORT INFORMATION
  Report Type: Spontaneous
  Country: US (occurrence: US)
  Receive Date: 20240327
  Receipt Date: 20240613
  Transmission Date: 20240716
  Serious: No
  Sender: FDA-Public Use
  Company Number: US-PFIZER INC-202400067998

PATIENT
  Age: 11 Year
  Sex: Female
  Weight: 42.18 kg

DRUGS (2)
  1. GENOTROPIN [Suspect]
     Active Substance: SOMATROPIN
     Indication: Growth hormone deficiency
     Dosage: 2.6 MG, DAILY
     Dates: start: 202312
  2. ADDERALL [Concomitant]
     Active Substance: AMPHETAMINE ASPARTATE\AMPHETAMINE SULFATE\DEXTROAMPHETAMINE SACCHARATE\DEXTROAMPHETAMINE SULFATE
     Dosage: 15 MILLIGRAMS ONCE DAILY

REACTIONS (4)
  - Drug dose omission by device [Unknown]
  - Device defective [Unknown]
  - Device information output issue [Unknown]
  - Off label use [Unknown]

NARRATIVE: CASE EVENT DATE: 20231201
